FAERS Safety Report 7584179-9 (Version None)
Quarter: 2011Q2

REPORT INFORMATION
  Report Type: 
  Country: None (occurrence: None)
  Receive Date: 20110630
  Receipt Date: 20110623
  Transmission Date: 20111010
  Serious: Yes (Other)
  Sender: FDA-Public Use
  Company Number: CA-AMGEN-CANSP2011027976

PATIENT
  Age: 65 Year
  Sex: Female
  Weight: 71.5 kg

DRUGS (5)
  1. CRESTOR [Concomitant]
     Dosage: 10 MG, QD
  2. ATACAND [Concomitant]
     Indication: HYPERTENSION
     Dosage: 8 MG, BID
  3. PROLIA [Suspect]
     Indication: OSTEOPOROSIS
     Dosage: 60 MG, Q6MO
     Route: 058
     Dates: start: 20110517
  4. OXYCONTIN [Concomitant]
     Dosage: 20 MG, UNK
  5. NEUROTIN                           /00949202/ [Concomitant]
     Dosage: 400 MG, UNK

REACTIONS (6)
  - ABASIA [None]
  - PAIN IN EXTREMITY [None]
  - BURNING SENSATION [None]
  - OEDEMA PERIPHERAL [None]
  - ARTHRALGIA [None]
  - URINE FLOW DECREASED [None]
